FAERS Safety Report 7828558-0 (Version None)
Quarter: 2011Q4

REPORT INFORMATION
  Report Type: 
  Country: None (occurrence: None)
  Receive Date: 20111020
  Receipt Date: 20111020
  Transmission Date: 20120403
  Serious: Yes (Hospitalization)
  Sender: FDA-Public Use
  Company Number: None

PATIENT
  Age: 88 Year
  Sex: Female
  Weight: 49 kg

DRUGS (6)
  1. CHOLECALCIFEROL [Concomitant]
     Route: 048
  2. ERGOCALCIFEROL [Concomitant]
     Route: 048
  3. DONEPEZIL HCL [Concomitant]
     Route: 048
  4. CITALOPRAM HYDROBROMIDE [Suspect]
     Indication: DEPRESSION
     Dosage: 40 MG
     Route: 048
     Dates: start: 20110804, end: 20110812
  5. MIRTAZAPINE [Concomitant]
     Indication: DEPRESSION
     Dosage: 7.5 MG
     Route: 048
     Dates: start: 20110808, end: 20110812
  6. MEMANTINE [Concomitant]
     Route: 048

REACTIONS (3)
  - DEPRESSED LEVEL OF CONSCIOUSNESS [None]
  - PARKINSON'S DISEASE [None]
  - SEROTONIN SYNDROME [None]
